FAERS Safety Report 11622733 (Version 1)
Quarter: 2015Q4

REPORT INFORMATION
  Report Type: Spontaneous
  Country: US (occurrence: None)
  Receive Date: 20151009
  Receipt Date: 20151009
  Transmission Date: 20160304
  Serious: Yes (Other)
  Sender: FDA-Public Use
  Company Number: None

PATIENT
  Age: 55 Year
  Sex: Female
  Weight: 85.7 kg

DRUGS (10)
  1. PRILOSEC [Concomitant]
     Active Substance: OMEPRAZOLE MAGNESIUM
  2. 5FU [Concomitant]
     Active Substance: FLUOROURACIL
  3. ZOLOFT [Concomitant]
     Active Substance: SERTRALINE HYDROCHLORIDE
  4. LEUCOVORIN. [Concomitant]
     Active Substance: LEUCOVORIN
  5. CAMPTOSAR [Suspect]
     Active Substance: IRINOTECAN HYDROCHLORIDE
     Indication: COLON CANCER STAGE III
     Dosage: EVERY 2 WEEKS 180/MZ=346 MG
     Route: 042
     Dates: start: 20150909
  6. EMEND [Concomitant]
     Active Substance: APREPITANT
  7. DECADRON [Concomitant]
     Active Substance: DEXAMETHASONE
  8. CAMPTOSAR [Suspect]
     Active Substance: IRINOTECAN HYDROCHLORIDE
     Dosage: 40 MG/2 ML?LOT # JK16B 07/2017
     Dates: start: 20150923
  9. ALOXI [Concomitant]
     Active Substance: PALONOSETRON HYDROCHLORIDE
  10. SINGULAIR [Concomitant]
     Active Substance: MONTELUKAST SODIUM

REACTIONS (1)
  - Dysarthria [None]

NARRATIVE: CASE EVENT DATE: 20150909
